FAERS Safety Report 13762613 (Version 3)
Quarter: 2025Q3

REPORT INFORMATION
  Report Type: Spontaneous
  Country: US (occurrence: US)
  Receive Date: 20170718
  Receipt Date: 20250908
  Transmission Date: 20251021
  Serious: Yes (Hospitalization, Other)
  Sender: TORRENT PHARMA INC.
  Company Number: US-MLMSERVICE-20160201-0152775-1

PATIENT
  Age: 78 Year
  Sex: Male

DRUGS (5)
  1. ESOMEPRAZOLE [Interacting]
     Active Substance: ESOMEPRAZOLE
     Indication: Product used for unknown indication
     Route: 065
  2. CAPECITABINE [Interacting]
     Active Substance: CAPECITABINE
     Indication: Squamous cell carcinoma
     Dosage: ON ALTERNATE WEEKS UPTO 3 MONTH PRIOR TO HOSPITILIZATION, 1500 MG PER DAY.
     Route: 048
  3. PAROXETINE [Interacting]
     Active Substance: PAROXETINE
     Indication: Product used for unknown indication
     Route: 065
  4. SIMVASTATIN [Interacting]
     Active Substance: SIMVASTATIN
     Indication: Product used for unknown indication
     Route: 065
  5. ACYCLOVIR [Concomitant]
     Active Substance: ACYCLOVIR
     Indication: Product used for unknown indication
     Route: 065

REACTIONS (3)
  - Meningitis cryptococcal [Not Recovered/Not Resolved]
  - Drug interaction [Unknown]
  - Off label use [Unknown]
